FAERS Safety Report 6102768-5 (Version None)
Quarter: 2009Q1

REPORT INFORMATION
  Report Type: 
  Country: None (occurrence: None)
  Receive Date: 20090304
  Receipt Date: 20090226
  Transmission Date: 20090719
  Serious: Yes (Hospitalization)
  Sender: FDA-Public Use
  Company Number: CA-B.I. PHARMACEUTICALS,INC./RIDGEFIELD-2009-DE-01904GD

PATIENT

DRUGS (7)
  1. MELOXICAM [Suspect]
     Indication: PROCEDURAL PAIN
     Dosage: 15MG
     Route: 048
  2. GABAPENTIN [Suspect]
     Indication: PROCEDURAL PAIN
     Dosage: 1600MG
     Route: 048
  3. GABAPENTIN [Suspect]
     Dosage: 1200MG
     Route: 048
  4. FENTANYL [Suspect]
     Indication: PROCEDURAL PAIN
     Dosage: 2 - 5 MCG/KG INTRAOPERATIVELY, CLINICIAN-CONTROLLED ANALGESIA IN PACU WITH 12.5 - 25 MCG EVERY 3 MIN
     Route: 042
  5. ONDANSETRON [Concomitant]
     Dosage: 4MG
     Route: 042
  6. ANESTHETIC [Concomitant]
     Indication: ANAESTHESIA
  7. BUPIVACAINE [Concomitant]
     Dosage: UP TO 15 ML OF 0.25%

REACTIONS (1)
  - HYPOXIA [None]
